FAERS Safety Report 10923973 (Version 1)
Quarter: 2015Q1

REPORT INFORMATION
  Report Type: Spontaneous
  Country: DK (occurrence: DK)
  Receive Date: 20150318
  Receipt Date: 20150318
  Transmission Date: 20150721
  Serious: Yes (Death, Other)
  Sender: FDA-Public Use
  Company Number: DK-MERCK-1503DNK005242

PATIENT
  Age: 77 Year
  Sex: Male
  Weight: 80 kg

DRUGS (11)
  1. SERTRALINE HYDROCHLORIDE. [Concomitant]
     Active Substance: SERTRALINE HYDROCHLORIDE
  2. DAKLINZA [Suspect]
     Active Substance: DACLATASVIR DIHYDROCHLORIDE
     Indication: HEPATITIS C
     Dosage: STRENGTH: 60
     Route: 048
     Dates: start: 20150123, end: 20150217
  3. PROPRANOLOL HYDROCHLORIDE. [Concomitant]
     Active Substance: PROPRANOLOL HYDROCHLORIDE
  4. ELIQUIS [Concomitant]
     Active Substance: APIXABAN
     Dates: end: 20150217
  5. VITAMIN D [Concomitant]
     Active Substance: CHOLECALCIFEROL
     Indication: VITAMIN D DEFICIENCY
     Dates: end: 20150217
  6. TRADOLAN [Concomitant]
     Active Substance: TRAMADOL
     Indication: PAIN
  7. RIBAVIRIN. [Suspect]
     Active Substance: RIBAVIRIN
     Indication: HEPATITIS C
     Route: 048
     Dates: start: 20150123, end: 20150217
  8. SOVALDI [Suspect]
     Active Substance: SOFOSBUVIR
     Indication: HEPATITIS C
     Dosage: STRENGTH: 400 MG
     Route: 048
     Dates: start: 20150123, end: 20150217
  9. FURIX [Concomitant]
     Active Substance: FUROSEMIDE
     Indication: ASCITES
  10. SPIRON (RISPERIDONE) [Concomitant]
     Indication: ASCITES
  11. TRADJENTA [Concomitant]
     Active Substance: LINAGLIPTIN
     Indication: DIABETES MELLITUS

REACTIONS (3)
  - Altered state of consciousness [Not Recovered/Not Resolved]
  - Respiratory failure [Fatal]
  - Coma hepatic [Fatal]

NARRATIVE: CASE EVENT DATE: 20150213
